FAERS Safety Report 7745346-4 (Version None)
Quarter: 2011Q3

REPORT INFORMATION
  Report Type: 
  Country: None (occurrence: None)
  Receive Date: 20110829
  Receipt Date: 20110823
  Transmission Date: 20111222
  Serious: Yes (Hospitalization)
  Sender: FDA-Public Use
  Company Number: 2009SP043141

PATIENT
  Age: 68 Year
  Sex: Female
  Weight: 56 kg

DRUGS (15)
  1. REBETOL [Suspect]
     Indication: HEPATITIS C
     Dosage: 600 MG;QD;PO
     Route: 048
     Dates: start: 20091109, end: 20091202
  2. DEPAS [Concomitant]
  3. MUCOSTA [Concomitant]
  4. LENDORMIN [Concomitant]
  5. NITRAZEPAM [Concomitant]
  6. FLOMOX [Concomitant]
  7. INTERFERON [Suspect]
     Indication: HEPATITIS C
     Dosage: 6 MIU;QD;INDRP
     Dates: start: 20091109, end: 20091202
  8. RABEPRAZOLE SODIUM [Concomitant]
  9. URSO 250 [Concomitant]
  10. LOXOPROFEN [Concomitant]
  11. DESMOPRESSIN [Concomitant]
  12. TOLTERODINE TARTRATE [Concomitant]
  13. HOKUNALIN [Concomitant]
  14. METLIGINE [Concomitant]
  15. ZOLOFT [Concomitant]

REACTIONS (7)
  - CONDITION AGGRAVATED [None]
  - AGGRESSION [None]
  - PORIOMANIA [None]
  - DELIRIUM [None]
  - HALLUCINATION, VISUAL [None]
  - SCHIZOPHRENIA [None]
  - DISSOCIATIVE DISORDER [None]
